FAERS Safety Report 7278369-2 (Version None)
Quarter: 2011Q1

REPORT INFORMATION
  Report Type: 
  Country: None (occurrence: None)
  Receive Date: 20110207
  Receipt Date: 20110202
  Transmission Date: 20110831
  Serious: Yes (Disabling)
  Sender: FDA-Public Use
  Company Number: GB-MERCK-1102GBR00010

PATIENT
  Age: 71 Year
  Sex: Female
  Weight: 64 kg

DRUGS (11)
  1. SALMETEROL [Concomitant]
     Route: 065
     Dates: start: 20100930, end: 20110106
  2. HYPROMELLOSE [Concomitant]
     Route: 065
     Dates: start: 20100930, end: 20101208
  3. ALBUTEROL SULFATE [Concomitant]
     Route: 065
     Dates: start: 20100930, end: 20110101
  4. FOSAMAX [Suspect]
     Route: 048
     Dates: start: 20101110
  5. DICLOFENAC SODIUM [Concomitant]
     Route: 065
     Dates: start: 20101026, end: 20101101
  6. BECLOMETHASONE DIPROPIONATE AND FORMOTEROL FUMARATE [Concomitant]
     Route: 065
     Dates: start: 20101215, end: 20110112
  7. CLOBETASONE BUTYRATE [Concomitant]
     Route: 065
     Dates: start: 20101001, end: 20101001
  8. CALCIUM (UNSPECIFIED) [Concomitant]
     Route: 065
     Dates: start: 20100930, end: 20110101
  9. CETIRIZINE HYDROCHLORIDE [Concomitant]
     Route: 065
     Dates: start: 20101110, end: 20110108
  10. OMEPRAZOLE [Concomitant]
     Route: 065
     Dates: start: 20101026, end: 20101101
  11. RISEDRONATE SODIUM [Concomitant]
     Route: 065
     Dates: start: 20100930, end: 20101001

REACTIONS (2)
  - MOUTH ULCERATION [None]
  - BLISTER [None]
